FAERS Safety Report 8769413 (Version 2)
Quarter: 2012Q4

REPORT INFORMATION
  Report Type: 
  Country: US (occurrence: US)
  Receive Date: 20120905
  Receipt Date: 20121003
  Transmission Date: 20130627
  Serious: No
  Sender: FDA-Public Use
  Company Number: US-ASTRAZENECA-2012SE57326

PATIENT
  Age: 68 Year
  Sex: Female

DRUGS (13)
  1. SYMBICORT PMDI [Suspect]
     Indication: ASTHMA
     Dosage: 320 MCG, TWO TIMES A DAY
     Route: 055
     Dates: start: 2010
  2. OXYBUTYNINER [Concomitant]
     Indication: INCONTINENCE
     Route: 048
  3. PANTOPRAZOLE [Concomitant]
     Indication: GASTROOESOPHAGEAL REFLUX DISEASE
     Route: 048
  4. CYMBALTA [Concomitant]
     Route: 048
  5. ISOSORBIDE [Concomitant]
     Indication: HYPERTENSION
     Route: 048
  6. CARBEDILOL [Concomitant]
     Indication: HYPERTENSION
     Route: 048
  7. ROPIENIROLE [Concomitant]
     Indication: RESTLESS LEGS SYNDROME
     Route: 048
  8. ROPIENIROLE [Concomitant]
     Indication: RESTLESS LEGS SYNDROME
     Route: 048
  9. PRAVACHOL [Concomitant]
     Indication: BLOOD CHOLESTEROL ABNORMAL
     Route: 048
  10. LOSARTAN [Concomitant]
     Indication: HYPERTENSION
     Route: 048
  11. ALBUTEROL SULFATE [Concomitant]
     Indication: ASTHMA
     Dosage: AS REQUIRED
     Route: 055
  12. IPRATROPIUM BROMIDE [Concomitant]
     Indication: ASTHMA
     Dosage: AS REQUIRED
     Route: 055
  13. TYLENOL [Concomitant]
     Indication: ARTHRITIS
     Dosage: AS REQUIRED
     Route: 048

REACTIONS (4)
  - Asthma [Recovered/Resolved]
  - Wheezing [Recovered/Resolved]
  - Drug dose omission [Unknown]
  - Drug ineffective [Unknown]
